FAERS Safety Report 5105590-1 (Version None)
Quarter: 2006Q3

REPORT INFORMATION
  Report Type: 
  Country: None (occurrence: None)
  Receive Date: 20060915
  Receipt Date: 20060901
  Transmission Date: 20061208
  Serious: Yes (Hospitalization)
  Sender: FDA-Public Use
  Company Number: PHHO2006FR14592

PATIENT
  Age: 47 Year
  Sex: Male
  Weight: 65 kg

DRUGS (2)
  1. CERTICAN [Suspect]
     Indication: LIVER TRANSPLANT
     Dosage: NO TREATMENT
  2. NEORAL [Suspect]
     Indication: LIVER TRANSPLANT
     Dosage: 200 MG PER DAY
     Route: 048
     Dates: start: 20060711

REACTIONS (3)
  - ANAEMIA [None]
  - HYPERKALAEMIA [None]
  - RENAL FAILURE CHRONIC [None]
